FAERS Safety Report 8539447-0 (Version None)
Quarter: 2012Q3

REPORT INFORMATION
  Report Type: 
  Country: None (occurrence: None)
  Receive Date: 20120726
  Receipt Date: 20120719
  Transmission Date: 20120928
  Serious: Yes (Hospitalization)
  Sender: FDA-Public Use
  Company Number: ES-SANOFI-AVENTIS-2011SA071996

PATIENT
  Age: 70 Year
  Sex: Male
  Weight: 93.5 kg

DRUGS (24)
  1. DOCETAXEL [Suspect]
     Route: 042
     Dates: start: 20111005
  2. LORMETAZEPAM [Concomitant]
     Indication: INSOMNIA
  3. TRAMADOL HYDROCHLORIDE [Concomitant]
  4. CALCIUM [Concomitant]
     Dates: start: 20111013, end: 20111014
  5. CALCIUM [Concomitant]
     Dates: start: 20111014, end: 20111014
  6. BLINDED THERAPY [Suspect]
     Route: 048
     Dates: start: 20111006
  7. BISOPROLOL FUMARATE [Concomitant]
     Dates: start: 20060101
  8. ACOVIL [Concomitant]
     Dates: start: 20060101
  9. HEPARIN [Concomitant]
  10. NITROGLYCERIN [Concomitant]
     Dates: start: 20060101
  11. DOCETAXEL [Suspect]
     Route: 042
     Dates: start: 20111024
  12. ATORVASTATIN [Concomitant]
     Dates: start: 20060101
  13. LYRICA [Concomitant]
     Indication: PAIN
     Dates: start: 20070101
  14. CALCIUM [Concomitant]
     Dosage: 500 UNIT NOT REPORTED
     Dates: start: 20111014, end: 20111017
  15. ASPIRIN [Concomitant]
     Dates: start: 20060101
  16. CALCIUM CARBONATE [Concomitant]
  17. PRIMPERAN TAB [Concomitant]
     Indication: NAUSEA
     Dates: start: 20111006, end: 20111012
  18. TORSEMIDE [Concomitant]
     Indication: HYPERTENSION
     Dates: start: 20060101, end: 20111022
  19. TIMOFTOL [Concomitant]
     Indication: OCULAR HYPERTENSION
  20. OMEPRAZOLE [Concomitant]
     Dates: start: 20070101
  21. OMACOR [Concomitant]
     Dates: start: 20060101
  22. NOLOTIL [Concomitant]
  23. ACETAMINOPHEN [Concomitant]
  24. FUROSEMIDE [Concomitant]
     Indication: HYPERTENSION

REACTIONS (4)
  - HYPOPHOSPHATAEMIA [None]
  - NEUTROPENIA [None]
  - HYPOKALAEMIA [None]
  - DIARRHOEA [None]
